FAERS Safety Report 9871816 (Version 1)
Quarter: 2014Q1

REPORT INFORMATION
  Report Type: Spontaneous
  Country: GB (occurrence: GB)
  Receive Date: 20140205
  Receipt Date: 20140205
  Transmission Date: 20141002
  Serious: Yes (Other)
  Sender: FDA-Public Use
  Company Number: PHHY2014GB010403

PATIENT
  Age: 18 Year
  Sex: Female

DRUGS (1)
  1. PENICILLIN V POTASSIUM [Suspect]
     Dates: start: 20140120

REACTIONS (2)
  - Cluster headache [Unknown]
  - Vomiting [Recovered/Resolved]
